FAERS Safety Report 15162136 (Version 1)
Quarter: 2018Q3

REPORT INFORMATION
  Report Type: Report from Study
  Country: US (occurrence: US)
  Receive Date: 20180718
  Receipt Date: 20180718
  Transmission Date: 20181010
  Serious: No
  Sender: FDA-Public Use
  Company Number: US-AMGEN-USASP2014015861

PATIENT
  Age: 52 Year
  Sex: Female
  Weight: 90.7 kg

DRUGS (5)
  1. REMICADE [Concomitant]
     Active Substance: INFLIXIMAB
     Dosage: UNK
  2. XANAX [Concomitant]
     Active Substance: ALPRAZOLAM
     Dosage: 1 MG, UNK
  3. ENBREL [Suspect]
     Active Substance: ETANERCEPT
     Indication: PRODUCT USED FOR UNKNOWN INDICATION
     Dosage: 50 MG, QWK
     Route: 058
  4. TRIAMCINOLON                       /00031901/ [Concomitant]
     Dosage: UNK
  5. BETAMETH DIPROPIONATE [Concomitant]
     Dosage: UNK

REACTIONS (1)
  - Psoriasis [Unknown]
